FAERS Safety Report 6493145-6 (Version None)
Quarter: 2009Q4

REPORT INFORMATION
  Report Type: 
  Country: None (occurrence: None)
  Receive Date: 20091214
  Receipt Date: 20091203
  Transmission Date: 20100525
  Serious: Yes (Hospitalization)
  Sender: FDA-Public Use
  Company Number: US-AMGEN-QUU378200

PATIENT
  Sex: Male

DRUGS (2)
  1. ENBREL [Suspect]
     Indication: RHEUMATOID ARTHRITIS
     Route: 058
     Dates: start: 20000101
  2. METHOTREXATE [Concomitant]
     Route: 048

REACTIONS (7)
  - BEDRIDDEN [None]
  - DIARRHOEA [None]
  - GAIT DISTURBANCE [None]
  - GASTRIC ULCER HAEMORRHAGE [None]
  - HOT FLUSH [None]
  - MALAISE [None]
  - RHEUMATOID ARTHRITIS [None]
